FAERS Safety Report 10306281 (Version 1)
Quarter: 2014Q3

REPORT INFORMATION
  Report Type: Spontaneous
  Country: JP (occurrence: JP)
  Receive Date: 20140715
  Receipt Date: 20140715
  Transmission Date: 20150326
  Serious: Yes (Death)
  Sender: FDA-Public Use
  Company Number: PHHY2009JP071917

PATIENT
  Age: 80 Year
  Sex: Female

DRUGS (1)
  1. SANDOSTATIN [Suspect]
     Active Substance: OCTREOTIDE ACETATE
     Indication: METASTATIC GASTRIC CANCER
     Dosage: 300 UG, QD
     Route: 058
     Dates: start: 200708, end: 200908

REACTIONS (1)
  - Death [Fatal]
